FAERS Safety Report 8831652 (Version 1)
Quarter: 2012Q4

REPORT INFORMATION
  Report Type: 
  Country: IT (occurrence: IT)
  Receive Date: 20121009
  Receipt Date: 20121009
  Transmission Date: 20130627
  Serious: Yes (Hospitalization)
  Sender: FDA-Public Use
  Company Number: IT-GLAXOSMITHKLINE-B0836163A

PATIENT
  Age: 50 Year
  Sex: Female

DRUGS (4)
  1. EUTIMIL [Suspect]
     Indication: SUICIDE ATTEMPT
     Route: 048
     Dates: start: 20120920, end: 20120920
  2. VENLAFAXINE [Suspect]
     Indication: SUICIDE ATTEMPT
     Route: 048
     Dates: start: 20120920, end: 20120920
  3. LEXOTAN [Suspect]
     Indication: SUICIDE ATTEMPT
     Dosage: 20ML per day
     Route: 048
     Dates: start: 20120920, end: 20120920
  4. EUTIROX [Suspect]
     Indication: SUICIDE ATTEMPT
     Route: 048
     Dates: start: 20120920, end: 20120920

REACTIONS (2)
  - Suicide attempt [Recovering/Resolving]
  - Self injurious behaviour [Recovering/Resolving]
